FAERS Safety Report 6606513-6 (Version None)
Quarter: 2010Q1

REPORT INFORMATION
  Report Type: 
  Country: None (occurrence: None)
  Receive Date: 20100226
  Receipt Date: 20100222
  Transmission Date: 20100710
  Serious: Yes (Other)
  Sender: FDA-Public Use
  Company Number: PHEH2010US01208

PATIENT
  Sex: Female

DRUGS (3)
  1. FEMARA [Suspect]
     Dosage: 2.5 MG, QD
     Route: 048
     Dates: start: 20060101
  2. FEMARA [Suspect]
     Dosage: NO TREATMENT
  3. FEMARA [Suspect]
     Dosage: UNK

REACTIONS (1)
  - KNEE OPERATION [None]
